FAERS Safety Report 8561086-6 (Version None)
Quarter: 2012Q3

REPORT INFORMATION
  Report Type: 
  Country: None (occurrence: None)
  Receive Date: 20120802
  Receipt Date: 20120406
  Transmission Date: 20120928
  Serious: No
  Sender: FDA-Public Use
  Company Number: US-BRISTOL-MYERS SQUIBB COMPANY-16488512

PATIENT
  Age: 28 Year
  Sex: Male
  Weight: 91 kg

DRUGS (1)
  1. REYATAZ [Suspect]
     Dates: start: 20090501

REACTIONS (5)
  - MIGRAINE [None]
  - PHARYNGITIS STREPTOCOCCAL [None]
  - HYPERBILIRUBINAEMIA [None]
  - ARTHRALGIA [None]
  - BACK PAIN [None]
